FAERS Safety Report 11729861 (Version 1)
Quarter: 2015Q4

REPORT INFORMATION
  Report Type: Spontaneous
  Country: ES (occurrence: ES)
  Receive Date: 20151112
  Receipt Date: 20151112
  Transmission Date: 20160304
  Serious: Yes (Other)
  Sender: FDA-Public Use
  Company Number: ES-ABBVIE-15P-144-1495066-00

PATIENT
  Age: 45 Year
  Sex: Male
  Weight: 84.5 kg

DRUGS (9)
  1. REXER [Concomitant]
     Active Substance: MIRTAZAPINE
     Indication: ANXIETY
  2. REBETOL [Concomitant]
     Active Substance: RIBAVIRIN
     Indication: CHRONIC HEPATITIS C
     Route: 048
     Dates: start: 20150611
  3. REXER [Concomitant]
     Active Substance: MIRTAZAPINE
     Indication: DEPRESSION
  4. NOCTAMID [Concomitant]
     Active Substance: LORMETAZEPAM
     Indication: PRODUCT USED FOR UNKNOWN INDICATION
     Route: 048
  5. EXVIERA [Suspect]
     Active Substance: DASABUVIR
     Indication: CHRONIC HEPATITIS C
     Route: 048
     Dates: start: 20150611
  6. DULOXETINA [Concomitant]
     Active Substance: DULOXETINE
     Indication: DEPRESSION
  7. VIEKIRAX [Suspect]
     Active Substance: OMBITASVIR\PARITAPREVIR\RITONAVIR
     Indication: CHRONIC HEPATITIS C
     Route: 048
     Dates: start: 20150611
  8. SPIRONOLACTONE. [Concomitant]
     Active Substance: SPIRONOLACTONE
     Indication: PRODUCT USED FOR UNKNOWN INDICATION
  9. DULOXETINA [Concomitant]
     Active Substance: DULOXETINE
     Indication: ANXIETY
     Route: 048

REACTIONS (2)
  - Ascites [Unknown]
  - Fatigue [Unknown]

NARRATIVE: CASE EVENT DATE: 201506
